FAERS Safety Report 10053182 (Version 3)
Quarter: 2014Q2

REPORT INFORMATION
  Report Type: Spontaneous
  Country: US (occurrence: US)
  Receive Date: 20140402
  Receipt Date: 20140612
  Transmission Date: 20141212
  Serious: Yes (Other)
  Sender: FDA-Public Use
  Company Number: US-GLAXOSMITHKLINE-A0806882A

PATIENT
  Sex: Male

DRUGS (1)
  1. AVANDIA [Suspect]
     Indication: DIABETES MELLITUS
     Dosage: 4MG TWICE PER DAY
     Route: 048
     Dates: start: 200601, end: 200711

REACTIONS (5)
  - Cardiac failure congestive [Unknown]
  - Myocardial ischaemia [Unknown]
  - Cardiomyopathy [Unknown]
  - Coronary artery stenosis [Unknown]
  - Coronary artery disease [Unknown]
